FAERS Safety Report 20591814 (Version 2)
Quarter: 2022Q2

REPORT INFORMATION
  Report Type: Spontaneous
  Country: CA (occurrence: CA)
  Receive Date: 20220314
  Receipt Date: 20220401
  Transmission Date: 20220721
  Serious: Yes (Other)
  Sender: FDA-Public Use
  Company Number: CA-PFIZER INC-202200382741

PATIENT
  Age: 38 Year
  Sex: Female

DRUGS (4)
  1. XELJANZ [Suspect]
     Active Substance: TOFACITINIB CITRATE
     Indication: Crohn^s disease
     Dosage: 1 DF,TO BE STOPPED 7 DAYS BEFORE INFLECTRA START.
     Route: 048
     Dates: start: 2022
  2. METHOTREXATE SODIUM [Suspect]
     Active Substance: METHOTREXATE SODIUM
     Indication: Crohn^s disease
     Dosage: 1 DF
     Route: 065
     Dates: start: 2012
  3. CORTISONE [Concomitant]
     Active Substance: CORTISONE
  4. PREDNISONE [Concomitant]
     Active Substance: PREDNISONE
     Dosage: 1 MG, DOSAGE NOT AVAILABLE

REACTIONS (5)
  - Abscess [Recovered/Resolved]
  - Condition aggravated [Unknown]
  - Drug ineffective [Unknown]
  - Off label use [Unknown]
  - Infection [Unknown]
